FAERS Safety Report 18999041 (Version 4)
Quarter: 2022Q1

REPORT INFORMATION
  Report Type: Spontaneous
  Country: FR (occurrence: FR)
  Receive Date: 20210311
  Receipt Date: 20220118
  Transmission Date: 20220423
  Serious: Yes (Other)
  Sender: FDA-Public Use
  Company Number: None

PATIENT
  Age: 62 Year
  Sex: Female

DRUGS (29)
  1. ONDANSETRON [Suspect]
     Active Substance: ONDANSETRON
     Indication: Nausea
     Dosage: UNK
     Route: 048
     Dates: start: 20200924
  2. ONDANSETRON [Suspect]
     Active Substance: ONDANSETRON
     Indication: Fistula
     Dosage: IF NEEDED
     Route: 048
     Dates: start: 20201022
  3. ONDANSETRON [Suspect]
     Active Substance: ONDANSETRON
     Dosage: 12 MG,QD (12 MG, 1X/DAY)
     Route: 042
     Dates: start: 20201022, end: 20201103
  4. ONDANSETRON [Suspect]
     Active Substance: ONDANSETRON
     Dosage: UNK (ORODISPERSIBLE FILM)
     Route: 048
     Dates: start: 20201022, end: 20201103
  5. LINEZOLID [Suspect]
     Active Substance: LINEZOLID
     Indication: Sepsis
     Dosage: 1200 MG, QD (1X/DAY)
     Route: 048
     Dates: start: 20201022, end: 20201027
  6. LINEZOLID [Suspect]
     Active Substance: LINEZOLID
     Dosage: 1200 MG, QD (1X/DAY)
     Route: 042
     Dates: start: 20201022, end: 20201027
  7. VANCOMYCIN [Suspect]
     Active Substance: VANCOMYCIN
     Indication: Infection
     Dosage: 2 G, 1X/DAY
     Route: 041
     Dates: start: 20200926, end: 20201006
  8. OCTREOTIDE [Suspect]
     Active Substance: OCTREOTIDE
     Indication: Fistula
     Dosage: 600 UG, 1X/DAY
     Route: 041
     Dates: start: 20200924, end: 20201025
  9. OCTREOTIDE [Suspect]
     Active Substance: OCTREOTIDE
     Dosage: UNK
     Route: 048
     Dates: start: 20200924
  10. OCTREOTIDE [Suspect]
     Active Substance: OCTREOTIDE
  11. PANTOPRAZOLE [Suspect]
     Active Substance: PANTOPRAZOLE
     Indication: Product used for unknown indication
     Dosage: UNK
     Route: 048
     Dates: start: 20200924
  12. PANTOPRAZOLE [Suspect]
     Active Substance: PANTOPRAZOLE
     Dosage: 40 MG, QD (1X/DAY)
     Route: 048
     Dates: start: 20200924, end: 20201025
  13. FLUCONAZOLE [Suspect]
     Active Substance: FLUCONAZOLE
     Indication: Sepsis
     Dosage: 400 MG, QD (1X/DAY)
     Route: 041
     Dates: start: 20200924, end: 20201025
  14. FLUCONAZOLE [Suspect]
     Active Substance: FLUCONAZOLE
     Dosage: 400 MG, QD (1X/DAY)
     Route: 041
     Dates: start: 20101022, end: 20201028
  15. FLUCONAZOLE [Suspect]
     Active Substance: FLUCONAZOLE
     Dosage: 400 MILLIGRAM, QD
     Route: 041
     Dates: start: 20201022, end: 20201028
  16. FLUCONAZOLE [Suspect]
     Active Substance: FLUCONAZOLE
     Dosage: UNK
     Route: 065
  17. MOTILIUM [Suspect]
     Active Substance: DOMPERIDONE
     Indication: Nausea
     Dosage: 400 MG,QD (UNK)
     Route: 065
  18. TAZOBACTAM [Suspect]
     Active Substance: TAZOBACTAM
     Indication: Sepsis
     Dosage: UNK (IF NEEDED)
     Route: 042
     Dates: start: 20201022
  19. TAZOBACTAM [Suspect]
     Active Substance: TAZOBACTAM
     Dosage: UNK
     Route: 041
     Dates: start: 20200926, end: 20201022
  20. MYCAMINE [Suspect]
     Active Substance: MICAFUNGIN SODIUM
     Indication: Candida sepsis
     Dosage: 100 MG,QD (UNK)
     Route: 042
     Dates: start: 20200926, end: 20201022
  21. MYCAMINE [Suspect]
     Active Substance: MICAFUNGIN SODIUM
     Dosage: 100 MG, 1X/DAY
     Route: 041
     Dates: start: 20201006, end: 20201022
  22. PIPERACILLIN SODIUM\TAZOBACTAM SODIUM [Suspect]
     Active Substance: PIPERACILLIN SODIUM\TAZOBACTAM SODIUM
     Indication: Product used for unknown indication
     Dosage: UNK (100 MG, 1X/DAY)
     Route: 042
     Dates: start: 20201006
  23. PIPERACILLIN SODIUM\TAZOBACTAM SODIUM [Suspect]
     Active Substance: PIPERACILLIN SODIUM\TAZOBACTAM SODIUM
     Dosage: 4G/500MG 2/DAY
     Route: 048
     Dates: start: 20200926, end: 20201006
  24. PIPERACILLIN SODIUM\TAZOBACTAM SODIUM [Suspect]
     Active Substance: PIPERACILLIN SODIUM\TAZOBACTAM SODIUM
     Dosage: UNK
     Route: 065
  25. MEROPENEM [Suspect]
     Active Substance: MEROPENEM
     Indication: Sepsis
     Dosage: 2 UNK,QD (4G/500MG 2/DAY)
     Route: 048
     Dates: start: 20200926, end: 20201006
  26. MEROPENEM [Suspect]
     Active Substance: MEROPENEM
     Dosage: UNK
     Route: 065
  27. MEROPENEM [Suspect]
     Active Substance: MEROPENEM
     Dosage: UNK
     Route: 041
     Dates: start: 20201006, end: 20201020
  28. PIPERACILLIN [Suspect]
     Active Substance: PIPERACILLIN
     Indication: Sepsis
     Dosage: UNK
     Route: 041
     Dates: start: 20200926, end: 20201022
  29. DOMPERIDONE [Suspect]
     Active Substance: DOMPERIDONE
     Indication: Nausea
     Dosage: UNK (IF NEEDED)
     Route: 048
     Dates: start: 20201022

REACTIONS (4)
  - Dermatitis exfoliative generalised [Not Recovered/Not Resolved]
  - Product use issue [Unknown]
  - Off label use [Unknown]
  - Rash morbilliform [Not Recovered/Not Resolved]

NARRATIVE: CASE EVENT DATE: 20200926
